FAERS Safety Report 7219457-6 (Version None)
Quarter: 2011Q1

REPORT INFORMATION
  Report Type: 
  Country: None (occurrence: None)
  Receive Date: 20110111
  Receipt Date: 20110107
  Transmission Date: 20110831
  Serious: Yes (Hospitalization)
  Sender: FDA-Public Use
  Company Number: US-SANOFI-AVENTIS-2010SA078501

PATIENT
  Age: 66 Year
  Sex: Male
  Weight: 87.3 kg

DRUGS (8)
  1. TAMSULOSIN HYDROCHLORIDE [Concomitant]
     Dates: start: 20100803
  2. DOCETAXEL [Suspect]
     Indication: PROSTATE CANCER
     Route: 041
     Dates: start: 20100813, end: 20100813
  3. DOCETAXEL [Suspect]
     Route: 041
     Dates: start: 20101210, end: 20101210
  4. NEURONTIN [Concomitant]
     Dates: start: 20101207
  5. INVESTIGATIONAL DRUG [Suspect]
     Route: 042
     Dates: start: 20101207, end: 20101207
  6. INVESTIGATIONAL DRUG [Suspect]
     Route: 042
     Dates: start: 20100907, end: 20100907
  7. INVESTIGATIONAL DRUG [Suspect]
     Indication: PROSTATE CANCER
     Route: 042
     Dates: start: 20100810, end: 20100810
  8. OXYCODONE [Concomitant]
     Dates: start: 20101116

REACTIONS (3)
  - PANCYTOPENIA [None]
  - OBSTRUCTIVE UROPATHY [None]
  - FEBRILE NEUTROPENIA [None]
